FAERS Safety Report 8430592-7 (Version None)
Quarter: 2012Q2

REPORT INFORMATION
  Report Type: 
  Country: None (occurrence: None)
  Receive Date: 20120612
  Receipt Date: 20120605
  Transmission Date: 20120825
  Serious: Yes (Hospitalization)
  Sender: FDA-Public Use
  Company Number: ES-GLAXOSMITHKLINE-Z0014504B

PATIENT
  Sex: Male

DRUGS (1)
  1. ELTROMBOPAG [Suspect]
     Indication: THROMBOCYTOPENIA
     Route: 048
     Dates: start: 20120222, end: 20120411

REACTIONS (1)
  - GASTROINTESTINAL HYPOMOTILITY [None]
